FAERS Safety Report 16725887 (Version 1)
Quarter: 2019Q3

REPORT INFORMATION
  Report Type: Spontaneous
  Country: US (occurrence: US)
  Receive Date: 20190821
  Receipt Date: 20190821
  Transmission Date: 20191005
  Serious: No
  Sender: FDA-Public Use
  Company Number: US-GLAXOSMITHKLINE-US2019149428

PATIENT
  Sex: Female

DRUGS (1)
  1. ANORO ELLIPTA [Suspect]
     Active Substance: UMECLIDINIUM BROMIDE\VILANTEROL TRIFENATATE
     Indication: LUNG DISORDER
     Dosage: 1 PUFF(S), 1D
     Route: 055

REACTIONS (9)
  - Diarrhoea [Recovering/Resolving]
  - Cough [Recovering/Resolving]
  - Dysphonia [Recovering/Resolving]
  - Choking sensation [Recovering/Resolving]
  - Oropharyngeal pain [Unknown]
  - Oesophageal pain [Unknown]
  - Wrong technique in device usage process [Unknown]
  - Underdose [Unknown]
  - Erythema [Recovering/Resolving]
